FAERS Safety Report 9168094 (Version 1)
Quarter: 2013Q1

REPORT INFORMATION
  Report Type: Spontaneous
  Country: US (occurrence: US)
  Receive Date: 20130318
  Receipt Date: 20130318
  Transmission Date: 20140127
  Serious: Yes (Other)
  Sender: FDA-Public Use
  Company Number: US-COVIDIEN/TYCO HEALTHCARE/MALLINCKRODT-T201301163

PATIENT
  Age: 23 Year
  Sex: Female

DRUGS (1)
  1. SODIUM IODIDE (I 131) [Suspect]
     Indication: THYROID CANCER
     Dosage: 148 MCI, SINGLE
     Route: 065

REACTIONS (2)
  - Lacrimation increased [Recovered/Resolved]
  - Dacryostenosis acquired [Recovered/Resolved]
